FAERS Safety Report 11977608 (Version 10)
Quarter: 2020Q4

REPORT INFORMATION
  Report Type: Spontaneous
  Country: US (occurrence: US)
  Receive Date: 20160129
  Receipt Date: 20201021
  Transmission Date: 20210113
  Serious: Yes (Hospitalization, Other)
  Sender: FDA-Public Use
  Company Number: US-PFIZER INC-2016046886

PATIENT
  Age: 65 Year
  Sex: Male

DRUGS (14)
  1. LYRICA [Suspect]
     Active Substance: PREGABALIN
     Indication: PAIN
     Dosage: 300 MG, DAILY (ONE 100MG CAPSULE AT 12PM NOON, TWO 100MG CAPSULES AT NIGHT)
     Route: 048
     Dates: start: 2009
  2. LOVASTATIN. [Concomitant]
     Active Substance: LOVASTATIN
     Dosage: 20 MG, DAILY
  3. AMOXICILLIN. [Concomitant]
     Active Substance: AMOXICILLIN
     Dosage: 500 MG, AS NEEDED
  4. DOXEPIN [Concomitant]
     Active Substance: DOXEPIN
     Dosage: 100 MG, 1X/DAY, (1 CAPSULE AT BEDTIME)
  5. LYRICA [Suspect]
     Active Substance: PREGABALIN
     Indication: SKELETAL INJURY
     Dosage: 100 MG, 3X/DAY (ONE 100MG CAPSULE BY MOUTH 3 TIMES DAILY)
     Route: 048
  6. DICLOFENAC SODIUM. [Concomitant]
     Active Substance: DICLOFENAC SODIUM
     Dosage: 75 MG, 3X/DAY, (1 TABLET, 3X DAILY)
  7. ACYCLOVIR. [Concomitant]
     Active Substance: ACYCLOVIR
     Dosage: 400 MG, AS NEEDED (2 TABLETS, 3X DAILY, AS NEEDED)
  8. ZOLPIDEM TARTRATE. [Concomitant]
     Active Substance: ZOLPIDEM TARTRATE
     Dosage: 10 MG, 1X/DAY, (1 TABLET AT BEDTIME)
  9. LYRICA [Suspect]
     Active Substance: PREGABALIN
     Indication: ARTHRALGIA
     Dosage: 900 MG, DAILY (ONE 300 MG CAPSULE AT 12PM NOON, TWO 300 MG CAPSULES AT BEDTIME)
     Route: 048
  10. CYCLOBENZAPRINE. [Concomitant]
     Active Substance: CYCLOBENZAPRINE
     Dosage: 10 MG, (1 TABLET 3-4X DAILY)
  11. CYCLOBENZAPRINE. [Concomitant]
     Active Substance: CYCLOBENZAPRINE
     Dosage: UNK
  12. DOXEPIN [Concomitant]
     Active Substance: DOXEPIN
     Dosage: 25 MG, 1X/DAY (1 CAPSULE AT BEDTIME)
  13. TAMSULOSIN [Concomitant]
     Active Substance: TAMSULOSIN
     Dosage: 4 MG, 1X/DAY, (1 CAPSULE AT BEDTIME)
  14. LYRICA [Suspect]
     Active Substance: PREGABALIN
     Indication: PHYSICAL DISABILITY

REACTIONS (5)
  - Prescribed overdose [Unknown]
  - Contusion [Not Recovered/Not Resolved]
  - Therapeutic product effect incomplete [Unknown]
  - Road traffic accident [Not Recovered/Not Resolved]
  - Spinal column injury [Not Recovered/Not Resolved]

NARRATIVE: CASE EVENT DATE: 20151001
